FAERS Safety Report 7965081-7 (Version None)
Quarter: 2011Q4

REPORT INFORMATION
  Report Type: 
  Country: None (occurrence: None)
  Receive Date: 20111208
  Receipt Date: 20111201
  Transmission Date: 20120403
  Serious: Yes (Hospitalization, Other)
  Sender: FDA-Public Use
  Company Number: US-BAYER-200917494NA

PATIENT
  Age: 40 Year
  Sex: Female

DRUGS (2)
  1. BETASERON [Suspect]
     Indication: MULTIPLE SCLEROSIS
     Dosage: 8 MIU, QOD
     Route: 058
     Dates: start: 20090106
  2. BETASERON [Suspect]
     Dosage: 8 MIU, QOD
     Route: 058

REACTIONS (14)
  - OPTIC NEURITIS [None]
  - PAIN IN EXTREMITY [None]
  - RHINORRHOEA [None]
  - SNEEZING [None]
  - CARDIAC FAILURE CONGESTIVE [None]
  - HYPOAESTHESIA [None]
  - COUGH [None]
  - DYSPNOEA [None]
  - NASOPHARYNGITIS [None]
  - CELLULITIS [None]
  - PYREXIA [None]
  - SKIN ULCER [None]
  - SWELLING [None]
  - BLINDNESS [None]
